FAERS Safety Report 7958769 (Version 7)
Quarter: 2013Q1

REPORT INFORMATION
  Report Type: Report from Study
  Country: JP (occurrence: JP)
  Receive Date: 20110524
  Receipt Date: 20130128
  Transmission Date: 20140127
  Serious: Yes (Hospitalization)
  Sender: FDA-Public Use
  Company Number: JP-UCBSA-017439

PATIENT
  Age: 57 Year
  Sex: Female
  Weight: 45.1 kg

DRUGS (26)
  1. FAMOTIDINE [Concomitant]
     Indication: GASTRITIS
     Route: 048
     Dates: end: 20100809
  2. FAMOTIDINE [Concomitant]
     Indication: GASTRITIS
     Route: 048
     Dates: start: 20100925
  3. FAMOTIDINE [Concomitant]
     Indication: GASTRITIS
     Route: 048
     Dates: start: 20110316
  4. TEPRENONE [Concomitant]
     Indication: GASTRITIS
     Route: 048
     Dates: end: 20100809
  5. ZOLPIDEM TARTRATE [Concomitant]
     Indication: INSOMNIA
     Dosage: 5 MG ONCE DAILY, AS NECESSARY
     Route: 048
     Dates: end: 20100809
  6. OLMESARTAN MEDOXOMIL [Concomitant]
     Indication: HYPERTENSION
     Route: 048
     Dates: start: 20101110
  7. OLMESARTAN MEDOXOMIL [Concomitant]
     Indication: HYPERTENSION
     Route: 048
     Dates: start: 20120808
  8. BROTIZOLAM [Concomitant]
     Indication: INSOMNIA
     Route: 048
     Dates: start: 20120125
  9. LEVETIRACETAM [Concomitant]
     Indication: CONVULSION PROPHYLAXIS
     Route: 048
     Dates: start: 20120620
  10. REBAMIPIDE [Concomitant]
     Indication: GASTRITIS
     Route: 048
     Dates: start: 20120910
  11. CERTOLIZUMAB PEGOL [Suspect]
     Indication: RHEUMATOID ARTHRITIS
     Route: 058
     Dates: start: 20110420
  12. CERTOLIZUMAB PEGOL [Suspect]
     Indication: RHEUMATOID ARTHRITIS
     Route: 058
     Dates: start: 20110325, end: 20110419
  13. CERTOLIZUMAB PEGOL [Suspect]
     Indication: RHEUMATOID ARTHRITIS
     Route: 058
     Dates: start: 20101027, end: 20110216
  14. CERTOLIZUMAB PEGOL [Suspect]
     Indication: RHEUMATOID ARTHRITIS
     Route: 058
     Dates: start: 20091228, end: 20100804
  15. CERTOLIZUMAB PEGOL [Suspect]
     Indication: RHEUMATOID ARTHRITIS
     Dosage: C87041
     Route: 058
     Dates: start: 20090607
  16. DEPAKENE [Suspect]
     Indication: PROPHYLAXIS
     Route: 048
     Dates: start: 20120709, end: 20121204
  17. DEPAKENE [Suspect]
     Indication: PROPHYLAXIS
     Route: 048
     Dates: start: 20120609, end: 2012
  18. DEPAKENE [Suspect]
     Indication: PROPHYLAXIS
     Route: 048
     Dates: start: 20100926, end: 20120608
  19. HYSERENIN [Suspect]
     Indication: CONVULSION PROPHYLAXIS
     Route: 048
     Dates: start: 20120910
  20. FOLIC ACID [Concomitant]
     Indication: RHEUMATOID ARTHRITIS
     Route: 048
     Dates: start: 200804, end: 20100803
  21. FOLIC ACID [Concomitant]
     Indication: RHEUMATOID ARTHRITIS
     Route: 048
     Dates: start: 20101223
  22. PREDNISOLONE [Concomitant]
     Indication: RHEUMATOID ARTHRITIS
     Route: 048
     Dates: start: 20090513, end: 20100809
  23. PREDNISOLONE [Concomitant]
     Indication: RHEUMATOID ARTHRITIS
     Route: 048
     Dates: start: 20101016
  24. INDOMETHACIN FARNESIL [Concomitant]
     Indication: RHEUMATOID ARTHRITIS
     Route: 048
     Dates: start: 200804, end: 20100809
  25. METHOTREXATE [Concomitant]
     Indication: RHEUMATOID ARTHRITIS
     Route: 048
     Dates: start: 20090517, end: 20100808
  26. METHOTREXATE [Concomitant]
     Indication: RHEUMATOID ARTHRITIS
     Route: 048
     Dates: start: 20101228

REACTIONS (2)
  - Subarachnoid haemorrhage [Recovered/Resolved]
  - Convulsion [Recovered/Resolved]
